FAERS Safety Report 19484470 (Version 1)
Quarter: 2021Q3

REPORT INFORMATION
  Report Type: Other
  Country: PT (occurrence: PT)
  Receive Date: 20210702
  Receipt Date: 20210702
  Transmission Date: 20211014
  Serious: Yes (Hospitalization)
  Sender: FDA-Public Use
  Company Number: PT-ROCHE-2860354

PATIENT
  Age: 47 Year
  Sex: Female

DRUGS (6)
  1. DIAZEPAM. [Suspect]
     Active Substance: DIAZEPAM
     Indication: BIPOLAR I DISORDER
     Dosage: AT NIGHT
     Route: 065
  2. DIAZEPAM. [Suspect]
     Active Substance: DIAZEPAM
     Route: 065
  3. LITHIUM. [Suspect]
     Active Substance: LITHIUM
     Indication: BIPOLAR I DISORDER
     Route: 065
  4. ESCITALOPRAM [Suspect]
     Active Substance: ESCITALOPRAM OXALATE
     Indication: BIPOLAR I DISORDER
     Dosage: DOSE INCREASED
     Route: 065
  5. BUSPIRONE [Suspect]
     Active Substance: BUSPIRONE HYDROCHLORIDE
     Indication: BIPOLAR I DISORDER
     Route: 065
  6. ESCITALOPRAM [Suspect]
     Active Substance: ESCITALOPRAM OXALATE
     Route: 065

REACTIONS (1)
  - Serotonin syndrome [Recovered/Resolved]
